FAERS Safety Report 15189266 (Version 1)
Quarter: 2018Q3

REPORT INFORMATION
  Report Type: Spontaneous
  Country: US (occurrence: US)
  Receive Date: 20180724
  Receipt Date: 20180724
  Transmission Date: 20181010
  Serious: No
  Sender: FDA-Public Use
  Company Number: US-PFIZER INC-2018295528

PATIENT
  Age: 80 Year
  Sex: Female

DRUGS (4)
  1. FASLODEX [Concomitant]
     Active Substance: FULVESTRANT
     Indication: BREAST CANCER
     Dosage: UNK
  2. IBRANCE [Suspect]
     Active Substance: PALBOCICLIB
     Indication: LUNG NEOPLASM MALIGNANT
  3. FASLODEX [Concomitant]
     Active Substance: FULVESTRANT
     Indication: LUNG NEOPLASM MALIGNANT
  4. IBRANCE [Suspect]
     Active Substance: PALBOCICLIB
     Indication: BREAST CANCER
     Dosage: UNK, CYCLIC (3 WEEKS ON, 1 WEEK OFF)

REACTIONS (2)
  - Mobility decreased [Unknown]
  - White blood cell count decreased [Unknown]
